FAERS Safety Report 5931873-9 (Version None)
Quarter: 2008Q4

REPORT INFORMATION
  Report Type: 
  Country: None (occurrence: None)
  Receive Date: 20081027
  Receipt Date: 20081015
  Transmission Date: 20090506
  Serious: Yes (Hospitalization)
  Sender: FDA-Public Use
  Company Number: JP-PFIZER INC-2008086599

PATIENT
  Age: 91 Year
  Sex: Female

DRUGS (13)
  1. NORVASC [Suspect]
     Route: 048
     Dates: start: 20061101
  2. ALDACTONE [Suspect]
     Route: 048
     Dates: start: 20061101
  3. SYMMETREL [Concomitant]
  4. EVISTA [Concomitant]
  5. LANSOPRAZOLE [Concomitant]
  6. BLOPRESS [Concomitant]
  7. LASIX [Concomitant]
  8. MOBIC [Concomitant]
  9. OPALMON [Concomitant]
  10. MAGNESIUM OXIDE [Concomitant]
  11. PURSENNID [Concomitant]
  12. ALLOPURINOL [Concomitant]
  13. LUVOX [Concomitant]

REACTIONS (1)
  - STOMATITIS [None]
